FAERS Safety Report 13469953 (Version 1)
Quarter: 2017Q2

REPORT INFORMATION
  Report Type: Spontaneous
  Country: US (occurrence: US)
  Receive Date: 20170422
  Receipt Date: 20170422
  Transmission Date: 20170830
  Serious: No
  Sender: FDA-Public Use
  Company Number: US-MEDA-2007110026

PATIENT
  Age: 58 Year
  Sex: Female
  Weight: 141 kg

DRUGS (14)
  1. OXYGEN. [Concomitant]
     Active Substance: OXYGEN
     Indication: ASTHMA
  2. NEURONTIN [Concomitant]
     Active Substance: GABAPENTIN
     Indication: ARTHRITIS
     Route: 048
  3. MIRAPEX [Concomitant]
     Active Substance: PRAMIPEXOLE DIHYDROCHLORIDE
     Indication: RESTLESS LEGS SYNDROME
     Route: 048
  4. CARDIZEM LA [Concomitant]
     Active Substance: DILTIAZEM HYDROCHLORIDE
     Indication: HYPERTENSION
     Route: 048
  5. HYDROCODONE W/ACETAMINOPHEN [Concomitant]
     Active Substance: ACETAMINOPHEN\HYDROCODONE BITARTRATE
     Indication: BACK PAIN
     Route: 048
  6. COUMADIN [Concomitant]
     Active Substance: WARFARIN SODIUM
     Route: 048
  7. PRILOSEC [Concomitant]
     Active Substance: OMEPRAZOLE MAGNESIUM
     Indication: GASTROOESOPHAGEAL REFLUX DISEASE
     Route: 048
  8. XOPENEX [Concomitant]
     Active Substance: LEVALBUTEROL HYDROCHLORIDE
     Indication: ASTHMA
  9. BUMETANIDE. [Concomitant]
     Active Substance: BUMETANIDE
     Route: 048
  10. ALBUTEROL INHALER NEBULIZER [Concomitant]
     Active Substance: ALBUTEROL
     Indication: ASTHMA
  11. ASTELIN [Suspect]
     Active Substance: AZELASTINE HYDROCHLORIDE
     Indication: NASAL CONGESTION
     Dates: start: 20071027, end: 20071114
  12. CARISOPRODOL. [Concomitant]
     Active Substance: CARISOPRODOL
     Indication: BACK PAIN
     Route: 048
  13. CLARITIN [Concomitant]
     Active Substance: LORATADINE
     Indication: SINUS CONGESTION
     Route: 048
  14. ARMOUR THYROID [Concomitant]
     Active Substance: THYROID, PORCINE
     Route: 048

REACTIONS (2)
  - Epistaxis [Not Recovered/Not Resolved]
  - Drug ineffective [Not Recovered/Not Resolved]

NARRATIVE: CASE EVENT DATE: 20071027
